FAERS Safety Report 13892596 (Version 1)
Quarter: 2017Q3

REPORT INFORMATION
  Report Type: Spontaneous
  Country: GB (occurrence: GB)
  Receive Date: 20170822
  Receipt Date: 20170822
  Transmission Date: 20171127
  Serious: Yes (Disabling, Other)
  Sender: FDA-Public Use
  Company Number: GB-TEVA-796915ACC

PATIENT
  Age: 29 Year
  Sex: Male
  Weight: 76.2 kg

DRUGS (8)
  1. CITALOPRAM [Suspect]
     Active Substance: CITALOPRAM HYDROBROMIDE
     Indication: DEPRESSION
     Route: 048
     Dates: start: 20111210, end: 20120125
  2. CITALOPRAM [Suspect]
     Active Substance: CITALOPRAM HYDROBROMIDE
     Dates: start: 2013
  3. PROPRANOLOL [Concomitant]
     Active Substance: PROPRANOLOL HYDROCHLORIDE
  4. N-ACETYLCYSTEINE [Concomitant]
     Active Substance: ACETYLCYSTEINE
  5. MIRTAZAPINE. [Concomitant]
     Active Substance: MIRTAZAPINE
  6. FLUOXETINE [Concomitant]
     Active Substance: FLUOXETINE HYDROCHLORIDE
     Indication: OBSESSIVE-COMPULSIVE DISORDER
  7. LITHIUM. [Concomitant]
     Active Substance: LITHIUM
  8. PREGABALIN. [Concomitant]
     Active Substance: PREGABALIN

REACTIONS (14)
  - Hypersensitivity [Not Recovered/Not Resolved]
  - Fear [Not Recovered/Not Resolved]
  - Disturbance in attention [Not Recovered/Not Resolved]
  - Condition aggravated [Unknown]
  - Panic disorder [Unknown]
  - Intrusive thoughts [Unknown]
  - Akathisia [Recovering/Resolving]
  - Withdrawal syndrome [Unknown]
  - Visual snow syndrome [Recovering/Resolving]
  - Cognitive disorder [Recovering/Resolving]
  - Bruxism [Unknown]
  - Agitation [Unknown]
  - Amnesia [Not Recovered/Not Resolved]
  - Dysphoria [Unknown]

NARRATIVE: CASE EVENT DATE: 201203
